FAERS Safety Report 5028765-9 (Version None)
Quarter: 2006Q2

REPORT INFORMATION
  Report Type: 
  Country: None (occurrence: None)
  Receive Date: 20060501
  Receipt Date: 20060201
  Transmission Date: 20061013
  Serious: Yes (Hospitalization)
  Sender: FDA-Public Use
  Company Number: 200611137US

PATIENT
  Age: 43 Year
  Sex: Female

DRUGS (4)
  1. KETEK [Suspect]
     Indication: UPPER RESPIRATORY TRACT INFECTION
  2. LIPITOR [Concomitant]
  3. METOPROLOL SUCCINATE [Concomitant]
  4. ADIPEX [Concomitant]

REACTIONS (1)
  - ANGIONEUROTIC OEDEMA [None]
